FAERS Safety Report 6006221-9 (Version None)
Quarter: 2008Q4

REPORT INFORMATION
  Report Type: 
  Country: None (occurrence: None)
  Receive Date: 20081215
  Receipt Date: 20081202
  Transmission Date: 20090506
  Serious: Yes (Hospitalization)
  Sender: FDA-Public Use
  Company Number: 2008-187915-NL

PATIENT
  Sex: Female

DRUGS (1)
  1. DANAPAROID SODIUM [Suspect]

REACTIONS (1)
  - PULMONARY EMBOLISM [None]
